FAERS Safety Report 25124499 (Version 1)
Quarter: 2025Q1

REPORT INFORMATION
  Report Type: Spontaneous
  Country: US (occurrence: None)
  Receive Date: 20250325
  Receipt Date: 20250325
  Transmission Date: 20250409
  Serious: No
  Sender: FDA-CTU
  Company Number: None

PATIENT
  Age: 8 Year
  Sex: Male
  Weight: 22.95 kg

DRUGS (1)
  1. BREYNA [Suspect]
     Active Substance: BUDESONIDE\FORMOTEROL FUMARATE
     Indication: Asthma
     Dosage: FREQUENCY : TWICE A DAY;?
     Route: 048
     Dates: start: 20240610

REACTIONS (4)
  - Anger [None]
  - Educational problem [None]
  - Disturbance in attention [None]
  - Educational problem [None]
